FAERS Safety Report 8285489-2 (Version None)
Quarter: 2012Q2

REPORT INFORMATION
  Report Type: 
  Country: None (occurrence: None)
  Receive Date: 20120413
  Receipt Date: 20111102
  Transmission Date: 20120825
  Serious: No
  Sender: FDA-Public Use
  Company Number: US-ASTRAZENECA-2011SE66511

PATIENT
  Age: 73 Year
  Sex: Male
  Weight: 70.3 kg

DRUGS (2)
  1. NEXIUM [Suspect]
     Indication: GASTROOESOPHAGEAL REFLUX DISEASE
     Route: 048
     Dates: start: 20110809
  2. MULTI-VITAMINS [Concomitant]
     Indication: MEDICAL DIET

REACTIONS (3)
  - INAPPROPRIATE SCHEDULE OF DRUG ADMINISTRATION [None]
  - HYPERCHLORHYDRIA [None]
  - NON-CARDIAC CHEST PAIN [None]
